FAERS Safety Report 10258494 (Version 1)
Quarter: 2014Q2

REPORT INFORMATION
  Report Type: Spontaneous
  Country: IT (occurrence: IT)
  Receive Date: 20140625
  Receipt Date: 20140625
  Transmission Date: 20141212
  Serious: Yes (Hospitalization)
  Sender: FDA-Public Use
  Company Number: IT-MYLANLABS-2014S1014164

PATIENT
  Age: 62 Year
  Sex: Male

DRUGS (7)
  1. METFORMIN [Suspect]
     Indication: PRODUCT USED FOR UNKNOWN INDICATION
     Dosage: 35000 MG TOTAL
     Route: 048
     Dates: start: 20140423, end: 20140423
  2. LANSOPRAZOLE [Suspect]
     Indication: PRODUCT USED FOR UNKNOWN INDICATION
     Dosage: 105 MG TOTAL
     Route: 048
     Dates: start: 20140423, end: 20140423
  3. SIMVASTATIN [Suspect]
     Indication: PRODUCT USED FOR UNKNOWN INDICATION
     Dosage: 280 MG TOTAL
     Route: 048
     Dates: start: 20140423, end: 20140423
  4. CITALOPRAM [Suspect]
     Indication: PRODUCT USED FOR UNKNOWN INDICATION
     Dosage: 280 MG TOTAL
     Route: 048
     Dates: start: 20140423, end: 20140423
  5. VASORETIC [Suspect]
     Indication: PRODUCT USED FOR UNKNOWN INDICATION
     Dosage: 227.5 MG TOTAL
     Route: 048
     Dates: start: 20140423, end: 20140423
  6. ZEFFIX [Suspect]
     Indication: PRODUCT USED FOR UNKNOWN INDICATION
     Dosage: 140 MG TOTAL
     Route: 048
     Dates: start: 20140423, end: 20140423
  7. DENIBAN [Suspect]
     Indication: PRODUCT USED FOR UNKNOWN INDICATION
     Dosage: 500 MG TOTAL
     Route: 048
     Dates: start: 20140423, end: 20140423

REACTIONS (4)
  - Overdose [Recovered/Resolved]
  - Drug abuse [Recovered/Resolved]
  - Sopor [Recovered/Resolved]
  - Intentional self-injury [Recovered/Resolved]
